FAERS Safety Report 8895432 (Version 1)
Quarter: 2012Q4

REPORT INFORMATION
  Report Type: 
  Country: GB (occurrence: GB)
  Receive Date: 20121107
  Receipt Date: 20121107
  Transmission Date: 20130627
  Serious: Yes (Other)
  Sender: FDA-Public Use
  Company Number: PHHY2012GB101603

PATIENT
  Age: 60 Year
  Sex: Female
  Weight: 68 kg

DRUGS (8)
  1. AMOXICILLIN [Suspect]
     Dates: start: 20121023
  2. CALCIUM CARBONATE [Concomitant]
     Dates: start: 20120618
  3. FERROUS FUMARATE [Concomitant]
     Dates: start: 20120618
  4. FLUOXETINE [Concomitant]
     Dates: start: 20120618
  5. PENTASA [Concomitant]
     Dates: start: 20120618
  6. DICLOFENAC SODIUM [Concomitant]
     Dates: start: 20120814
  7. OMEPRAZOLE [Concomitant]
     Dates: start: 20120814
  8. DIAZEPAM [Concomitant]
     Dates: start: 20121016

REACTIONS (3)
  - Malaise [Unknown]
  - Vomiting [Unknown]
  - Diarrhoea [Unknown]
